FAERS Safety Report 6820746-5 (Version None)
Quarter: 2010Q3

REPORT INFORMATION
  Report Type: 
  Country: None (occurrence: None)
  Receive Date: 20100707
  Receipt Date: 20070521
  Transmission Date: 20110219
  Serious: No
  Sender: FDA-Public Use
  Company Number: US-PFIZER INC-2007016615

PATIENT
  Age: 19 Year
  Sex: Male

DRUGS (4)
  1. ZOLOFT [Suspect]
     Indication: ANXIETY
     Route: 048
     Dates: start: 20051001
  2. ZOLOFT [Suspect]
     Indication: DEPRESSION
  3. ALL OTHER THERAPEUTIC PRODUCTS [Concomitant]
  4. BUPRENORPHINE HYDROCHLORIDE [Concomitant]

REACTIONS (1)
  - DRUG SCREEN FALSE POSITIVE [None]
